FAERS Safety Report 9520996 (Version 2)
Quarter: 2013Q4

REPORT INFORMATION
  Report Type: Spontaneous
  Country: US (occurrence: US)
  Receive Date: 20130913
  Receipt Date: 20131010
  Transmission Date: 20140711
  Serious: No
  Sender: FDA-Public Use
  Company Number: US-PFIZER INC-2013263312

PATIENT
  Age: 43 Year
  Sex: Female
  Weight: 79 kg

DRUGS (3)
  1. PRISTIQ [Suspect]
     Indication: DEPRESSION
     Dosage: 100 MG, 1X/DAY
     Route: 048
     Dates: start: 2009
  2. LINZESS [Suspect]
     Dosage: UNK
  3. SYNTHROID [Concomitant]
     Dosage: UNK

REACTIONS (3)
  - Drug withdrawal syndrome [Unknown]
  - Nausea [Unknown]
  - Headache [Unknown]
